FAERS Safety Report 8564938-6 (Version None)
Quarter: 2012Q3

REPORT INFORMATION
  Report Type: 
  Country: None (occurrence: None)
  Receive Date: 20120803
  Receipt Date: 20120731
  Transmission Date: 20120928
  Serious: Yes (Death)
  Sender: FDA-Public Use
  Company Number: US-PFIZER INC-2012186812

PATIENT
  Sex: Male

DRUGS (1)
  1. INLYTA [Suspect]
     Indication: RENAL CANCER
     Dosage: 05 MG, 2X/DAY
     Route: 048
     Dates: start: 20120310, end: 20120705

REACTIONS (2)
  - DISEASE PROGRESSION [None]
  - RENAL CANCER [None]
